FAERS Safety Report 8384138-2 (Version None)
Quarter: 2012Q2

REPORT INFORMATION
  Report Type: 
  Country: None (occurrence: None)
  Receive Date: 20120524
  Receipt Date: 20120417
  Transmission Date: 20120825
  Serious: Yes (Hospitalization, Other)
  Sender: FDA-Public Use
  Company Number: US-PFIZER INC-2012096561

PATIENT
  Sex: Female
  Weight: 62.5 kg

DRUGS (12)
  1. LYRICA [Suspect]
     Indication: NEURALGIA
     Dosage: 75 MG, 2X/DAY
     Dates: start: 20120401
  2. POTASSIUM [Concomitant]
     Dosage: UNK
  3. MAXALT [Concomitant]
     Dosage: 10 MG, AS NEEDED
  4. BACLOFEN [Concomitant]
     Dosage: UNK
  5. ADVAIR DISKUS 100/50 [Concomitant]
     Dosage: 2X/DAY
  6. CORGARD [Concomitant]
     Dosage: 20 MG, 1X/DAY
  7. HUMIRA [Concomitant]
     Dosage: 40 MG, UNK
  8. TRILIPIX [Concomitant]
     Dosage: UNK
  9. SYNTHROID [Concomitant]
     Dosage: 0.05 MG, 1X/DAY
  10. MESALAMINE [Concomitant]
     Dosage: 0.650 MG (TWO TABLETS OF 0.325MG), 1X/DAY
  11. LASIX [Concomitant]
     Dosage: 40 MG, 1X/DAY
  12. LIPITOR [Suspect]
     Indication: BLOOD CHOLESTEROL INCREASED
     Dosage: 20 MG, 1X/DAY
     Route: 048
     Dates: start: 20120101, end: 20120401

REACTIONS (8)
  - PAIN IN EXTREMITY [None]
  - MUSCLE ATROPHY [None]
  - PAIN [None]
  - MUSCULAR WEAKNESS [None]
  - OEDEMA PERIPHERAL [None]
  - CLOSTRIDIUM DIFFICILE COLITIS [None]
  - MUSCLE DISORDER [None]
  - MYALGIA [None]
